FAERS Safety Report 5020628-8 (Version None)
Quarter: 2006Q2

REPORT INFORMATION
  Report Type: 
  Country: None (occurrence: None)
  Receive Date: 20060607
  Receipt Date: 20060531
  Transmission Date: 20061013
  Serious: Yes (Hospitalization, Disabling)
  Sender: FDA-Public Use
  Company Number: US-MERCK-0606USA00363

PATIENT
  Age: 88 Year
  Sex: Female
  Weight: 79 kg

DRUGS (11)
  1. ELAVIL [Suspect]
     Route: 048
  2. WARFARIN [Suspect]
     Indication: ATRIAL FIBRILLATION
     Route: 048
  3. PRIMIDONE [Suspect]
     Indication: TREMOR
     Route: 048
  4. MECLIZINE [Suspect]
     Indication: VERTIGO
     Route: 065
  5. MECLIZINE [Suspect]
     Indication: DIZZINESS
     Route: 065
  6. PRINIVIL [Suspect]
     Route: 048
  7. FEXOFENADINE HYDROCHLORIDE [Concomitant]
     Route: 048
  8. METOPROLOL [Suspect]
     Route: 048
  9. DOCUSATE POTASSIUM [Concomitant]
     Route: 065
  10. ASPIRIN [Concomitant]
     Route: 048
  11. DIGOXIN [Concomitant]
     Route: 048

REACTIONS (16)
  - BLOOD CREATININE INCREASED [None]
  - BRADYCARDIA [None]
  - CONTUSION [None]
  - DIPLOPIA [None]
  - DIZZINESS [None]
  - DRUG INEFFECTIVE [None]
  - EXCORIATION [None]
  - FALL [None]
  - HAEMORRHAGE [None]
  - HEADACHE [None]
  - HYPERTENSION [None]
  - INTERNATIONAL NORMALISED RATIO INCREASED [None]
  - OEDEMA [None]
  - RADIAL PULSE INCREASED [None]
  - SUBDURAL HAEMATOMA [None]
  - VERTIGO [None]
